FAERS Safety Report 4747164-8 (Version None)
Quarter: 2005Q3

REPORT INFORMATION
  Report Type: 
  Country: None (occurrence: None)
  Receive Date: 20050815
  Receipt Date: 20050318
  Transmission Date: 20060218
  Serious: Yes (Hospitalization)
  Sender: FDA-Public Use
  Company Number: MEDI-0003036

PATIENT
  Age: 11 Month
  Sex: Male
  Weight: 10.4327 kg

DRUGS (6)
  1. SYNAGIS [Suspect]
     Indication: ANTIVIRAL PROPHYLAXIS
     Dosage: 190 MG, 1 IN 30 D, INTRAMUSCULAR
     Route: 030
     Dates: start: 20041021, end: 20050203
  2. SYNAGIS [Suspect]
     Dosage: 1 IN 30 D, INTRAMUSCULAR
     Dates: start: 20041021
  3. SYNAGIS [Suspect]
     Dosage: 160 MG, 1 IN 30 D, INTRAMUSCULAR
     Dates: start: 20041123
  4. SYNAGIS [Suspect]
     Dosage: 1 IN 30 D, INTRAMUSCULAR
     Dates: start: 20050303
  5. ALBUTEROL [Concomitant]
  6. PULMICORT [Concomitant]

REACTIONS (4)
  - COUGH [None]
  - PYREXIA [None]
  - RESPIRATORY SYNCYTIAL VIRUS INFECTION [None]
  - WHEEZING [None]
